FAERS Safety Report 4493622-3 (Version None)
Quarter: 2004Q3

REPORT INFORMATION
  Report Type: 
  Country: None (occurrence: None)
  Receive Date: 20040921
  Receipt Date: 20040116
  Transmission Date: 20050211
  Serious: Yes (Hospitalization)
  Sender: FDA-Public Use
  Company Number: 163-20785-04010443

PATIENT
  Age: 78 Year
  Sex: Male
  Weight: 79.1 kg

DRUGS (20)
  1. THALOMID [Suspect]
     Indication: ACUTE MYELOID LEUKAEMIA
     Dosage: SEE IMAGE
     Route: 048
     Dates: start: 20031117, end: 20031123
  2. THALOMID [Suspect]
     Indication: ACUTE MYELOID LEUKAEMIA
     Dosage: SEE IMAGE
     Route: 048
     Dates: start: 20031124
  3. THALOMID [Suspect]
     Indication: ACUTE MYELOID LEUKAEMIA
     Dosage: SEE IMAGE
     Route: 048
     Dates: start: 20031126
  4. FLUDARABINE PHOSPHATE [Suspect]
     Indication: ACUTE MYELOID LEUKAEMIA
     Dosage: 28 MG, DAILY, INTRAVENOUS
     Route: 042
     Dates: start: 20031114, end: 20031118
  5. CARBOPLATIN [Suspect]
     Indication: ACUTE MYELOID LEUKAEMIA
     Dosage: 225 MG, DAILY, ORAL
     Route: 048
     Dates: start: 20031114, end: 20031119
  6. TOPOTECAN (TOPOTECAN) [Suspect]
     Indication: ACUTE MYELOID LEUKAEMIA
     Dosage: 1.6 MG, 3 DOSES, ORAL
     Route: 048
     Dates: start: 20031119, end: 20031121
  7. ACYCLOVIR [Concomitant]
  8. ALLOPURINOL [Concomitant]
  9. CEFEPIME (CEFEPIME) [Concomitant]
  10. CLOTRIMAZOLE (CLOTRIMAZOLE) [Concomitant]
  11. DOXAZOSIN (DOXAZOSIN) [Concomitant]
  12. FUROSEMIDE [Concomitant]
  13. LANSOPRAZOLE [Concomitant]
  14. AMBISOME [Concomitant]
  15. LORAZEPAM [Concomitant]
  16. PROCHLORPERAZINE [Concomitant]
  17. PYRIDOXINE (PYRIDOXINE) [Concomitant]
  18. THIETHYLPERAZINE (THIETHYLPERAZINE) [Concomitant]
  19. VANCOMYCIN [Concomitant]
  20. TOBRAMYCIN [Concomitant]

REACTIONS (3)
  - DIZZINESS [None]
  - FATIGUE [None]
  - HYPONATRAEMIA [None]
